FAERS Safety Report 21379078 (Version 1)
Quarter: 2022Q3

REPORT INFORMATION
  Report Type: Spontaneous
  Country: CN (occurrence: CN)
  Receive Date: 20220927
  Receipt Date: 20220927
  Transmission Date: 20221027
  Serious: Yes (Other)
  Sender: FDA-Public Use
  Company Number: CN-SUN PHARMACEUTICAL INDUSTRIES LTD-2022R1-355827

PATIENT
  Age: 71 Year
  Sex: Male

DRUGS (2)
  1. GEMCITABINE [Suspect]
     Active Substance: GEMCITABINE
     Indication: Transitional cell carcinoma
     Dosage: 1000 MILLIGRAM/SQ. METER, DAYS 1 AND 8 EVERY 3 WEEKS FOR TWO CYCLES
     Route: 042
     Dates: start: 201805
  2. NEDAPLATIN [Suspect]
     Active Substance: NEDAPLATIN
     Indication: Transitional cell carcinoma
     Dosage: 80 MILLIGRAM/SQ. METER, DAY 1 EVERY 3 WEEKS FOR TWO CYCLES
     Route: 042

REACTIONS (1)
  - Disease progression [Unknown]
